FAERS Safety Report 10064347 (Version 1)
Quarter: 2014Q2

REPORT INFORMATION
  Report Type: Spontaneous
  Country: US (occurrence: None)
  Receive Date: 20140407
  Receipt Date: 20140407
  Transmission Date: 20141212
  Serious: Yes (Life-Threatening, Hospitalization)
  Sender: FDA-Public Use
  Company Number: None

PATIENT
  Age: 71 Year
  Sex: Female

DRUGS (1)
  1. ISOVUE-370 [Suspect]
     Indication: ANGIOGRAM

REACTIONS (6)
  - Hypotension [None]
  - Anuria [None]
  - Fluid overload [None]
  - Renal tubular necrosis [None]
  - Acidosis [None]
  - Haemorrhage [None]
